FAERS Safety Report 23597653 (Version 4)
Quarter: 2024Q2

REPORT INFORMATION
  Report Type: Report from Study
  Country: GB (occurrence: GB)
  Receive Date: 20240305
  Receipt Date: 20240608
  Transmission Date: 20240716
  Serious: Yes (Other)
  Sender: FDA-Public Use
  Company Number: GB-ABBVIE-5660120

PATIENT
  Age: 63 Year
  Sex: Male

DRUGS (7)
  1. CARBIDOPA\LEVODOPA [Suspect]
     Active Substance: CARBIDOPA\LEVODOPA
     Indication: Parkinson^s disease
     Dosage: MD 10.0MLS, CR 2.1MLS, ED 1.5MLS RUNS FROM 0600-1800?LAST ADMIN DATE: 2024
     Route: 050
     Dates: start: 20240228
  2. CARBIDOPA\LEVODOPA [Suspect]
     Active Substance: CARBIDOPA\LEVODOPA
     Dosage: MD 10.0MLS, CR 2.2MLS, ED 1.5MLS RUNS FROM 0600-1800
     Route: 050
     Dates: end: 20240227
  3. CARBIDOPA\LEVODOPA [Suspect]
     Active Substance: CARBIDOPA\LEVODOPA
     Dosage: MD:10.00MLS, CR: 2.2 MLS /HR, ED: 1.7 MLS?DOSE INCREASED
     Route: 050
     Dates: start: 2024, end: 2024
  4. CARBIDOPA\LEVODOPA [Suspect]
     Active Substance: CARBIDOPA\LEVODOPA
     Dosage: CR:2.5MLS/HR
     Route: 050
     Dates: start: 2024
  5. RASAGILINE [Concomitant]
     Active Substance: RASAGILINE\RASAGILINE MESYLATE
     Indication: Product used for unknown indication
  6. MIRTAZAPINE [Suspect]
     Active Substance: MIRTAZAPINE
     Indication: Product used for unknown indication
     Route: 065
     Dates: end: 202402
  7. SINEMET [Concomitant]
     Active Substance: CARBIDOPA\LEVODOPA
     Indication: Product used for unknown indication
     Dosage: 25/100MGS X 2 , AT 06.00 AM

REACTIONS (18)
  - Suicidal ideation [Recovered/Resolved]
  - Fear of falling [Unknown]
  - Agoraphobia [Unknown]
  - Depressed mood [Recovering/Resolving]
  - Paranoia [Recovering/Resolving]
  - Fall [Unknown]
  - Constipation [Unknown]
  - Hallucination, visual [Unknown]
  - Therapeutic product effect incomplete [Unknown]
  - Anxiety [Recovering/Resolving]
  - Bereavement [Unknown]
  - Insomnia [Not Recovered/Not Resolved]
  - Freezing phenomenon [Unknown]
  - Muscle rigidity [Unknown]
  - Tremor [Unknown]
  - Device dislocation [Unknown]
  - Depression [Unknown]
  - On and off phenomenon [Unknown]

NARRATIVE: CASE EVENT DATE: 20240101
